FAERS Safety Report 23592823 (Version 6)
Quarter: 2024Q3

REPORT INFORMATION
  Report Type: Spontaneous
  Country: JP (occurrence: None)
  Receive Date: 20240304
  Receipt Date: 20240702
  Transmission Date: 20241017
  Serious: Yes (Death, Life-Threatening, Hospitalization, Other)
  Sender: ASTRAZENECA
  Company Number: 2024A051510

PATIENT
  Age: 70 Year
  Sex: Male
  Weight: 61 kg

DRUGS (3)
  1. IMFINZI [Suspect]
     Active Substance: DURVALUMAB
     Indication: Bile duct cancer
     Route: 041
     Dates: start: 20240117, end: 20240209
  2. GEMCITABINE HYDROCHLORIDE [Concomitant]
     Active Substance: GEMCITABINE HYDROCHLORIDE
     Indication: Bile duct cancer
     Route: 065
     Dates: start: 20240117, end: 20240216
  3. CISPLATIN [Concomitant]
     Active Substance: CISPLATIN
     Indication: Bile duct cancer
     Route: 065
     Dates: start: 20240117, end: 20240216

REACTIONS (6)
  - Perforation bile duct [Fatal]
  - Liver abscess [Fatal]
  - Shock [Recovered/Resolved]
  - Sepsis [Recovering/Resolving]
  - Infected neoplasm [Recovering/Resolving]
  - Chemical peritonitis [Recovering/Resolving]

NARRATIVE: CASE EVENT DATE: 20240101
